FAERS Safety Report 13245833 (Version 1)
Quarter: 2017Q1

REPORT INFORMATION
  Report Type: Spontaneous
  Country: RU (occurrence: RU)
  Receive Date: 20170217
  Receipt Date: 20170217
  Transmission Date: 20170428
  Serious: Yes (Hospitalization)
  Sender: FDA-Public Use
  Company Number: RU-ASTRAZENECA-2017SE16761

PATIENT
  Age: 16 Month
  Sex: Female

DRUGS (1)
  1. PULMICORT TURBUHALER [Suspect]
     Active Substance: BUDESONIDE
     Indication: BRONCHOPULMONARY DYSPLASIA
     Route: 055

REACTIONS (3)
  - Pneumonia [Unknown]
  - Off label use [Not Recovered/Not Resolved]
  - Product use issue [Unknown]
